FAERS Safety Report 9380259 (Version 1)
Quarter: 2013Q2

REPORT INFORMATION
  Report Type: Spontaneous
  Country: GB (occurrence: None)
  Receive Date: 20130628
  Receipt Date: 20130628
  Transmission Date: 20140414
  Serious: Yes (Other)
  Sender: FDA-Public Use
  Company Number: GER/UKI/13/0030192

PATIENT
  Age: 68 Year
  Sex: Female
  Weight: 74.38 kg

DRUGS (1)
  1. TERBINAFINE (TERBINAFINE) [Suspect]
     Indication: ONYCHOMYCOSIS
     Route: 048
     Dates: start: 20130318, end: 20130517

REACTIONS (5)
  - Ageusia [None]
  - Decreased appetite [None]
  - Weight decreased [None]
  - Malaise [None]
  - Fatigue [None]
